FAERS Safety Report 24026192 (Version 4)
Quarter: 2024Q3

REPORT INFORMATION
  Report Type: Report from Study
  Country: CN (occurrence: CN)
  Receive Date: 20240628
  Receipt Date: 20240710
  Transmission Date: 20241017
  Serious: No
  Sender: ROCHE
  Company Number: CN-ROCHE-3189014

PATIENT
  Age: 52 Year
  Sex: Male
  Weight: 87.0 kg

DRUGS (5)
  1. ALECTINIB [Suspect]
     Active Substance: ALECTINIB
     Indication: Lung cancer metastatic
     Route: 048
     Dates: start: 20210705
  2. ALECTINIB [Suspect]
     Active Substance: ALECTINIB
     Route: 048
     Dates: start: 20210915
  3. COMPOUND PARACETAMOL AND AMANTADINE HYDROCHLORIDE [Concomitant]
     Indication: Pyrexia
     Dosage: 1 CAPSULE
     Route: 048
     Dates: start: 20221220, end: 20221221
  4. LIUWEIWULING [Concomitant]
     Indication: Blood creatinine increased
     Route: 048
     Dates: start: 20230428, end: 20240326
  5. LIUWEIWULING [Concomitant]
     Indication: Blood bilirubin increased

REACTIONS (1)
  - Hyperuricaemia [Not Recovered/Not Resolved]

NARRATIVE: CASE EVENT DATE: 20220914
